FAERS Safety Report 24276313 (Version 1)
Quarter: 2024Q3

REPORT INFORMATION
  Report Type: Spontaneous
  Country: DE (occurrence: DE)
  Receive Date: 20240903
  Receipt Date: 20240903
  Transmission Date: 20241017
  Serious: Yes (Death, Hospitalization, Other)
  Sender: EXELIXIS
  Company Number: DE-IPSEN Group, Research and Development-2024-17013

PATIENT
  Age: 75 Year
  Sex: Male

DRUGS (2)
  1. CABOMETYX [Suspect]
     Active Substance: CABOZANTINIB S-MALATE
     Indication: Product used for unknown indication
     Dosage: 40 MG
     Route: 065
     Dates: start: 202111
  2. CABOMETYX [Suspect]
     Active Substance: CABOZANTINIB S-MALATE
     Dosage: 20 MG
     Route: 065
     Dates: start: 2022

REACTIONS (4)
  - Death [Fatal]
  - Metastases to central nervous system [Unknown]
  - Metastases to lung [Unknown]
  - Diarrhoea [Unknown]

NARRATIVE: CASE EVENT DATE: 20231114
